FAERS Safety Report 9799563 (Version 2)
Quarter: 2014Q1

REPORT INFORMATION
  Report Type: Spontaneous
  Country: US (occurrence: US)
  Receive Date: 20140106
  Receipt Date: 20140106
  Transmission Date: 20141002
  Serious: No
  Sender: FDA-Public Use
  Company Number: US-GILEAD-2010-0030144

PATIENT
  Sex: Female
  Weight: 45.36 kg

DRUGS (15)
  1. LETAIRIS [Suspect]
     Indication: PULMONARY ARTERIAL HYPERTENSION
     Route: 048
     Dates: start: 20090227
  2. NITROGLYCERIN [Concomitant]
  3. SPIRONOLACTONE [Concomitant]
  4. NITROFURANTOIN [Concomitant]
  5. LASIX [Concomitant]
  6. DETROL LA [Concomitant]
  7. SYNTHROID [Concomitant]
  8. COUMADIN [Concomitant]
  9. DIOVAN [Concomitant]
  10. LANOXIN [Concomitant]
  11. OS-CAL [Concomitant]
  12. NEXIUM [Concomitant]
  13. CRESTOR [Concomitant]
  14. MULTIVITAMIN [Concomitant]
  15. METOPROLOL [Concomitant]

REACTIONS (2)
  - Laboratory test abnormal [Unknown]
  - Swelling [Unknown]
